FAERS Safety Report 11769421 (Version 2)
Quarter: 2015Q4

REPORT INFORMATION
  Report Type: Spontaneous
  Country: US (occurrence: US)
  Receive Date: 20151123
  Receipt Date: 20151208
  Transmission Date: 20160304
  Serious: Yes (Other)
  Sender: FDA-Public Use
  Company Number: US-LPDUSPRD-20150908

PATIENT
  Age: 2 Year
  Sex: Male

DRUGS (1)
  1. STERILE WATER FOR INJECTION, USP (0017-01) [Suspect]
     Active Substance: WATER
     Dosage: 0.15 ML/MIN
     Route: 065

REACTIONS (1)
  - Water intoxication [Unknown]
